FAERS Safety Report 21961835 (Version 1)
Quarter: 2023Q1

REPORT INFORMATION
  Report Type: Spontaneous
  Country: TW (occurrence: None)
  Receive Date: 20230207
  Receipt Date: 20230207
  Transmission Date: 20230418
  Serious: Yes (Other)
  Sender: FDA-Public Use
  Company Number: TW-ROCHE-3278974

PATIENT
  Age: 44 Year
  Sex: Male

DRUGS (4)
  1. ATEZOLIZUMAB [Suspect]
     Active Substance: ATEZOLIZUMAB
     Indication: Lung adenocarcinoma
     Dosage: 4 CYCLES OF ABCP THERAPY AND 9 CYCLES OF ATEZOLIZUMAB WITH BEVACIZUMAB MAINTENANCE THERAPY
     Route: 065
  2. BEVACIZUMAB [Suspect]
     Active Substance: BEVACIZUMAB
     Indication: Lung adenocarcinoma
     Dosage: 4 CYCLES OF ABCP THERAPY AND 9 CYCLES OF ATEZOLIZUMAB+BEVACIZUMAB MAINTENANCE THERAPY
     Route: 065
  3. CARBOPLATIN [Concomitant]
     Active Substance: CARBOPLATIN
     Indication: Lung adenocarcinoma
     Dosage: ABCP
     Route: 065
  4. PACLITAXEL [Concomitant]
     Active Substance: PACLITAXEL
     Indication: Lung adenocarcinoma
     Dosage: ABCP
     Route: 065

REACTIONS (2)
  - Brain cancer metastatic [Unknown]
  - Epilepsy [Unknown]
